FAERS Safety Report 12072230 (Version 1)
Quarter: 2016Q1

REPORT INFORMATION
  Report Type: Spontaneous
  Country: US (occurrence: US)
  Receive Date: 20160212
  Receipt Date: 20160212
  Transmission Date: 20160526
  Serious: Yes (Hospitalization, Other)
  Sender: FDA-Public Use
  Company Number: US-TEVA-634440USA

PATIENT
  Age: 2 Day
  Sex: Male

DRUGS (15)
  1. ACTIQ [Suspect]
     Active Substance: FENTANYL CITRATE
     Indication: ANALGESIC THERAPY
     Route: 064
  2. MAGNESIUM SULFATE. [Concomitant]
     Active Substance: MAGNESIUM SULFATE
     Route: 064
  3. HYDROMORPHONE [Suspect]
     Active Substance: HYDROMORPHONE
     Indication: ANALGESIC THERAPY
     Route: 064
  4. MIDAZOLAM [Concomitant]
     Active Substance: MIDAZOLAM\MIDAZOLAM HYDROCHLORIDE
     Indication: SEDATION
     Dosage: 4 MG/H
     Route: 064
  5. CLINDAMYCIN [Concomitant]
     Active Substance: CLINDAMYCIN\CLINDAMYCIN PHOSPHATE
     Route: 064
  6. BETAMETHASONE. [Concomitant]
     Active Substance: BETAMETHASONE
     Route: 064
  7. DINOPROST [Concomitant]
     Active Substance: DINOPROST
     Route: 064
  8. GENTAMICIN. [Concomitant]
     Active Substance: GENTAMICIN
     Route: 065
  9. CEFOTAXIME [Concomitant]
     Active Substance: CEFOTAXIME SODIUM
     Route: 064
  10. VANCOMYCIN [Concomitant]
     Active Substance: VANCOMYCIN
     Route: 064
  11. AMPICILLIN [Concomitant]
     Active Substance: AMPICILLIN
     Route: 065
  12. CAFFEINE. [Concomitant]
     Active Substance: CAFFEINE
     Route: 065
  13. LABETALOL [Concomitant]
     Active Substance: LABETALOL\LABETALOL HYDROCHLORIDE
     Indication: HYPERTENSION
     Route: 064
  14. MORPHINE [Suspect]
     Active Substance: MORPHINE
     Indication: ANALGESIC THERAPY
     Dosage: 5 MG/H
     Route: 064
  15. PROPOFOL. [Concomitant]
     Active Substance: PROPOFOL
     Indication: SEDATION
     Dosage: 5 MG/H
     Route: 064

REACTIONS (5)
  - Drug withdrawal syndrome neonatal [Recovered/Resolved]
  - Irritability [Recovered/Resolved]
  - Hypertonia [Recovered/Resolved]
  - Foetal exposure during pregnancy [Recovered/Resolved]
  - Frequent bowel movements [Recovered/Resolved]
